FAERS Safety Report 20236663 (Version 1)
Quarter: 2021Q4

REPORT INFORMATION
  Report Type: Other
  Country: CN (occurrence: None)
  Receive Date: 20211228
  Receipt Date: 20211228
  Transmission Date: 20220303
  Serious: Yes (Death, Other)
  Sender: FDA-Public Use
  Company Number: CN-ROCHE-2986722

PATIENT

DRUGS (4)
  1. MYCOPHENOLATE MOFETIL [Suspect]
     Active Substance: MYCOPHENOLATE MOFETIL
     Indication: Prophylaxis against transplant rejection
     Route: 065
  2. LAPINE T-LYMPHOCYTE IMMUNE GLOBULIN [Suspect]
     Active Substance: LAPINE T-LYMPHOCYTE IMMUNE GLOBULIN
     Indication: Prophylaxis against transplant rejection
     Route: 065
  3. TACROLIMUS [Suspect]
     Active Substance: TACROLIMUS
     Indication: Prophylaxis against transplant rejection
     Dosage: PLASMA CONCENTRATION OF FK506 WAS MAINTAINED AT 6-10 MICOG/L
     Route: 065
  4. CYCLOSPORINE [Suspect]
     Active Substance: CYCLOSPORINE
     Indication: Prophylaxis against transplant rejection
     Dosage: MAINTAINED AT 150-250 MICROG/L
     Route: 065

REACTIONS (21)
  - Respiratory failure [Fatal]
  - Pneumocystis jirovecii pneumonia [Unknown]
  - Cytomegalovirus infection [Unknown]
  - Pneumonia [Unknown]
  - Pneumocystis jirovecii infection [Unknown]
  - Alpha haemolytic streptococcal infection [Unknown]
  - Pseudomonas infection [Unknown]
  - Klebsiella infection [Unknown]
  - Staphylococcal infection [Unknown]
  - Enterobacter infection [Unknown]
  - Enterococcal infection [Unknown]
  - Moraxella infection [Unknown]
  - Tuberculosis [Unknown]
  - Mucormycosis [Unknown]
  - Cryptococcosis [Unknown]
  - Hepatitis B [Unknown]
  - Herpes zoster [Unknown]
  - Candida infection [Unknown]
  - Bacterial infection [Unknown]
  - Fungal infection [Unknown]
  - Micrococcus infection [Unknown]
